FAERS Safety Report 16190928 (Version 4)
Quarter: 2019Q3

REPORT INFORMATION
  Report Type: Report from Study
  Country: CN (occurrence: CN)
  Receive Date: 20190412
  Receipt Date: 20190724
  Transmission Date: 20191004
  Serious: Yes (Hospitalization)
  Sender: FDA-Public Use
  Company Number: CN-TAKEDA-2019TUS021295

PATIENT
  Age: 33 Year
  Sex: Male
  Weight: 87 kg

DRUGS (5)
  1. MESALAZINE [Concomitant]
     Active Substance: MESALAMINE
     Dosage: 0.5 GRAM, TID
     Route: 050
     Dates: start: 20190110, end: 20190123
  2. PINAVERIUM BROMIDE [Concomitant]
     Active Substance: PINAVERIUM BROMIDE
     Indication: COLITIS ULCERATIVE
     Dosage: 1 GRAM, TID
     Route: 048
     Dates: start: 20190110, end: 20190123
  3. MESALAZINE [Concomitant]
     Active Substance: MESALAMINE
     Dosage: 0.5 GRAM, TID
     Route: 050
     Dates: start: 20190409
  4. VEDOLIZUMAB [Suspect]
     Active Substance: VEDOLIZUMAB
     Indication: COLITIS ULCERATIVE
     Dosage: UNK
     Route: 042
     Dates: start: 20171106
  5. MESALAZINE [Concomitant]
     Active Substance: MESALAMINE
     Indication: COLITIS ULCERATIVE
     Dosage: 1 GRAM, TID
     Route: 048
     Dates: start: 20171016, end: 20181225

REACTIONS (1)
  - Colitis ulcerative [Recovered/Resolved]

NARRATIVE: CASE EVENT DATE: 20181105
